FAERS Safety Report 24194223 (Version 3)
Quarter: 2024Q4

REPORT INFORMATION
  Report Type: Spontaneous
  Country: FR (occurrence: FR)
  Receive Date: 20240809
  Receipt Date: 20241014
  Transmission Date: 20250115
  Serious: Yes (Hospitalization, Other)
  Sender: ABBVIE
  Company Number: FR-ABBVIE-5864188

PATIENT
  Age: 76 Year
  Sex: Female

DRUGS (3)
  1. OZURDEX [Suspect]
     Active Substance: DEXAMETHASONE
     Indication: Product used for unknown indication
     Dosage: TIME INTERVAL: AS NECESSARY: DOSAGE FORM: PELLET?FREQUENCY WAS EVERY 3 MONTHS
     Route: 050
     Dates: start: 20240605, end: 20240605
  2. VANCOMYCIN [Concomitant]
     Active Substance: VANCOMYCIN
     Indication: Product used for unknown indication
  3. CEFTAZIDIME [Concomitant]
     Active Substance: CEFTAZIDIME
     Indication: Product used for unknown indication

REACTIONS (10)
  - Myocardial infarction [Unknown]
  - Eye pain [Unknown]
  - Ocular hyperaemia [Unknown]
  - Headache [Unknown]
  - Product contamination microbial [Unknown]
  - Poor quality product administered [Unknown]
  - Eye infection bacterial [Unknown]
  - Retinal ischaemia [Unknown]
  - Retinal disorder [Unknown]
  - Papilloedema [Unknown]

NARRATIVE: CASE EVENT DATE: 20240101
